FAERS Safety Report 9526959 (Version 1)
Quarter: 2013Q3

REPORT INFORMATION
  Report Type: Spontaneous
  Country: US (occurrence: US)
  Receive Date: 20130916
  Receipt Date: 20130916
  Transmission Date: 20140515
  Serious: No
  Sender: FDA-Public Use
  Company Number: US-ASTRAZENECA-2013SE34498

PATIENT
  Age: 65 Year
  Sex: Female
  Weight: 72.6 kg

DRUGS (6)
  1. SYMBICORT [Suspect]
     Indication: ASTHMA
     Route: 055
     Dates: start: 2009
  2. MONTELUKAST [Suspect]
     Indication: ASTHMA
     Route: 048
  3. OMEPRAZOLE [Suspect]
     Route: 048
     Dates: start: 2010
  4. GABAPENTIN [Concomitant]
     Indication: NERVE INJURY
     Route: 048
     Dates: start: 2008, end: 201301
  5. VENTOLIN HFA [Concomitant]
     Indication: INHALATION THERAPY
     Route: 055
  6. CENTRUM SILVER FOR WOMEN [Concomitant]
     Indication: VITAMIN SUPPLEMENTATION
     Dosage: UNKNOWN DOSE, DAILY
     Route: 048

REACTIONS (7)
  - Osteoarthritis [Unknown]
  - Goitre [Unknown]
  - Drug dose omission [Unknown]
  - Visual impairment [Unknown]
  - Memory impairment [Unknown]
  - Off label use [Unknown]
  - Drug dispensing error [Unknown]
